FAERS Safety Report 5760670-2 (Version None)
Quarter: 2008Q2

REPORT INFORMATION
  Report Type: 
  Country: None (occurrence: None)
  Receive Date: 20080606
  Receipt Date: 20080527
  Transmission Date: 20081010
  Serious: Yes (Other)
  Sender: FDA-Public Use
  Company Number: CA-BAYER-200824329NA

PATIENT
  Age: 44 Year
  Sex: Female

DRUGS (3)
  1. MIRENA [Suspect]
     Indication: CONTRACEPTION
     Route: 015
     Dates: start: 20060101
  2. TYLENOL [Concomitant]
     Indication: ABDOMINAL PAIN
     Route: 048
  3. ADVIL [Concomitant]
     Indication: ABDOMINAL PAIN
     Route: 048

REACTIONS (4)
  - BACK PAIN [None]
  - HYPOMENORRHOEA [None]
  - INTERVERTEBRAL DISC OPERATION [None]
  - MUSCLE SPASMS [None]
